FAERS Safety Report 4411443-4 (Version None)
Quarter: 2004Q3

REPORT INFORMATION
  Report Type: 
  Country: None (occurrence: None)
  Receive Date: 20040727
  Receipt Date: 20040714
  Transmission Date: 20050211
  Serious: Yes (Other)
  Sender: FDA-Public Use
  Company Number: 2004047277

PATIENT
  Age: 39 Year
  Sex: Male

DRUGS (7)
  1. LIPITOR [Suspect]
     Indication: HYPERCHOLESTEROLAEMIA
     Dosage: 5 MG (5 MG, 1 IN 1 D), ORAL
     Route: 048
     Dates: start: 20040522, end: 20040608
  2. PIOGLITAZONE HCL [Suspect]
     Indication: ILL-DEFINED DISORDER
     Dosage: 15 MG (15 MG, 1 IN 1 D), ORAL
     Route: 048
     Dates: start: 20040522, end: 20040608
  3. GLYBURIDE [Concomitant]
  4. VOGLIBOSE (VOGLIBOSE) [Concomitant]
  5. METFORMIN HCL [Concomitant]
  6. ENALAPRIL MALEATE [Concomitant]
  7. TERBINAFINE HCL [Concomitant]

REACTIONS (3)
  - HYPOAESTHESIA [None]
  - NEUROPATHY PERIPHERAL [None]
  - RETINAL HAEMORRHAGE [None]
